FAERS Safety Report 10691306 (Version 1)
Quarter: 2015Q1

REPORT INFORMATION
  Report Type: Spontaneous
  Country: US (occurrence: US)
  Receive Date: 20150105
  Receipt Date: 20150105
  Transmission Date: 20150720
  Serious: No
  Sender: FDA-Public Use
  Company Number: US-GLAXOSMITHKLINE-US2014GSK043344

PATIENT
  Age: 69 Year
  Sex: Female

DRUGS (2)
  1. SUMATRIPTAN TABLETS [Suspect]
     Active Substance: SUMATRIPTAN
     Indication: MIGRAINE
     Dosage: 50 MG, 4 DIFFERENT OCCASIONS
  2. TYLENOL WITH CODEINE [Concomitant]
     Active Substance: ACETAMINOPHEN\CODEINE PHOSPHATE

REACTIONS (2)
  - Drug ineffective [Recovered/Resolved]
  - Product substitution issue [None]
